FAERS Safety Report 20936770 (Version 1)
Quarter: 2022Q2

REPORT INFORMATION
  Report Type: Report from Study
  Country: JP (occurrence: JP)
  Receive Date: 20220609
  Receipt Date: 20220609
  Transmission Date: 20220721
  Serious: Yes (Hospitalization)
  Sender: FDA-Public Use
  Company Number: JP-INSMED, INC.-2022-00426-JP

PATIENT
  Age: 74 Year
  Sex: Female

DRUGS (1)
  1. ARIKAYCE [Suspect]
     Active Substance: AMIKACIN
     Indication: Product used for unknown indication
     Dosage: UNK, QD
     Route: 055
     Dates: start: 202202, end: 20220505

REACTIONS (6)
  - Hospitalisation [Unknown]
  - Tongue discolouration [Unknown]
  - Cough [Unknown]
  - Malaise [Not Recovered/Not Resolved]
  - Therapy cessation [Unknown]
  - Wrong technique in product usage process [None]

NARRATIVE: CASE EVENT DATE: 20220101
